FAERS Safety Report 13024850 (Version 1)
Quarter: 2016Q4

REPORT INFORMATION
  Report Type: Spontaneous
  Country: US (occurrence: US)
  Receive Date: 20161213
  Receipt Date: 20161213
  Transmission Date: 20170207
  Serious: Yes (Other)
  Sender: FDA-Public Use
  Company Number: US-ROCHE-1765930

PATIENT
  Sex: Female

DRUGS (2)
  1. GAZYVA [Suspect]
     Active Substance: OBINUTUZUMAB
     Indication: CHRONIC LYMPHOCYTIC LEUKAEMIA
     Dosage: SPLIT FIRST DOSE - DAY ONE 100 MG.
     Route: 042
     Dates: start: 201605
  2. IBRUTINIB [Concomitant]
     Active Substance: IBRUTINIB

REACTIONS (1)
  - Anaphylactic reaction [Recovered/Resolved]
